FAERS Safety Report 22108537 (Version 1)
Quarter: 2023Q1

REPORT INFORMATION
  Report Type: Spontaneous
  Country: US (occurrence: US)
  Receive Date: 20230317
  Receipt Date: 20230317
  Transmission Date: 20230418
  Serious: No
  Sender: FDA-Public Use
  Company Number: US-ALVOGEN-2023089188

PATIENT
  Age: 73 Year
  Sex: Female

DRUGS (4)
  1. ESTRADIOL [Suspect]
     Active Substance: ESTRADIOL
     Indication: Product used for unknown indication
     Dosage: ON EXTERNAL LABIA EACH NIGHT, TOPICAL
  2. ESTRADIOL TRANSDERMAL SYSTEM [Suspect]
     Active Substance: ESTRADIOL
     Indication: Product used for unknown indication
  3. INTRAROSA [Suspect]
     Active Substance: PRASTERONE
     Indication: Vulvitis
     Dosage: 3 TIMES PER WEEK AT BEDTIME?NDA 208470
     Dates: start: 202211
  4. PROGESTERONE [Suspect]
     Active Substance: PROGESTERONE
     Indication: Product used for unknown indication
     Dosage: EACH NIGHT

REACTIONS (2)
  - Anxiety [Not Recovered/Not Resolved]
  - Product use issue [Unknown]

NARRATIVE: CASE EVENT DATE: 20221101
